FAERS Safety Report 12296894 (Version 2)
Quarter: 2016Q2

REPORT INFORMATION
  Report Type: Report from Study
  Country: US (occurrence: US)
  Receive Date: 20160422
  Receipt Date: 20160505
  Transmission Date: 20160815
  Serious: Yes (Hospitalization, Other)
  Sender: FDA-Public Use
  Company Number: US-GILEAD-2016-0209816

PATIENT
  Age: 62 Year
  Sex: Male
  Weight: 78.5 kg

DRUGS (12)
  1. FENTANYL TRANSDERMAL SYSTEM [Concomitant]
     Active Substance: FENTANYL
  2. HYDROMORPHONE [Concomitant]
     Active Substance: HYDROMORPHONE
  3. LORATADIN [Concomitant]
     Active Substance: LORATADINE
  4. METOPROLOL. [Concomitant]
     Active Substance: METOPROLOL
  5. SENNOSIDES A+B [Concomitant]
     Active Substance: SENNOSIDES A AND B
  6. SILDENAFIL. [Concomitant]
     Active Substance: SILDENAFIL
  7. FUROSEMIDE. [Concomitant]
     Active Substance: FUROSEMIDE
  8. GABAPENTIN. [Concomitant]
     Active Substance: GABAPENTIN
  9. AMBRISENTAN [Suspect]
     Active Substance: AMBRISENTAN
     Indication: PULMONARY HYPERTENSION
     Dosage: 10 MG, QD
     Route: 065
     Dates: start: 20120227
  10. CYCLOSPORINE. [Concomitant]
     Active Substance: CYCLOSPORINE
  11. DOCUSATE [Concomitant]
     Active Substance: DOCUSATE
  12. OMEPRAZOLE. [Concomitant]
     Active Substance: OMEPRAZOLE

REACTIONS (3)
  - Presyncope [Recovered/Resolved]
  - Nausea [Unknown]
  - Chest pain [Recovered/Resolved]

NARRATIVE: CASE EVENT DATE: 20160406
